FAERS Safety Report 19606913 (Version 1)
Quarter: 2021Q3

REPORT INFORMATION
  Report Type: Spontaneous
  Country: CN (occurrence: CN)
  Receive Date: 20210725
  Receipt Date: 20210725
  Transmission Date: 20211014
  Serious: Yes (Other)
  Sender: FDA-Public Use
  Company Number: CN-BAXTER-2021BAX021737

PATIENT
  Age: 71 Year
  Sex: Female
  Weight: 79 kg

DRUGS (8)
  1. 0.9% SODIUM CHLORIDE INJECTION [Suspect]
     Active Substance: SODIUM CHLORIDE
     Dosage: TCPH REGIMEN; HERCEPTIN 316 MG + 0.9% SODIUM CHLORIDE 250ML
     Route: 041
     Dates: start: 20210618, end: 20210618
  2. 0.9% SODIUM CHLORIDE INJECTION [Suspect]
     Active Substance: SODIUM CHLORIDE
     Dosage: TCPH REGIMEN, PATEJIE 840 MG + 0.9% SODIUM CHLORIDE 250ML
     Route: 041
     Dates: start: 20210618, end: 20210618
  3. HERCEPTIN [Suspect]
     Active Substance: TRASTUZUMAB
     Indication: BREAST CANCER
     Dosage: TCPH REGIMEN, HERCEPTIN 316 MG + 0.9% SODIUM CHLORIDE 250ML
     Route: 041
     Dates: start: 20210618, end: 20210618
  4. ENDOXAN [Suspect]
     Active Substance: CYCLOPHOSPHAMIDE
     Indication: BREAST CANCER
     Dosage: TCPH REGIMEN, ENDOXAN 900 MG + 0.9% SODIUM CHLORIDE 100ML
     Route: 041
     Dates: start: 20210619, end: 20210619
  5. PATEJIE [PERTUZUMAB] [Suspect]
     Active Substance: PERTUZUMAB
     Indication: BREAST CANCER
     Dosage: TCPH REGIMEN, PATEJIE 840 MG + 0.9% SODIUM CHLORIDE 250ML
     Route: 041
     Dates: start: 20210618, end: 20210618
  6. AISU [Suspect]
     Active Substance: DOCETAXEL
     Indication: BREAST CANCER
     Dosage: TCPH REGIMEN, AISU 130 MG + 0.9% SODIUM CHLORIDE 350ML
     Route: 041
     Dates: start: 20210619, end: 20210619
  7. 0.9% SODIUM CHLORIDE INJECTION [Suspect]
     Active Substance: SODIUM CHLORIDE
     Dosage: TCPH REGIMEN, AISU 130 MG + 0.9% SODIUM CHLORIDE 350ML
     Route: 041
     Dates: start: 20210619, end: 20210619
  8. 0.9% SODIUM CHLORIDE INJECTION [Suspect]
     Active Substance: SODIUM CHLORIDE
     Indication: MEDICATION DILUTION
     Dosage: TCPH REGIMEN, ENDOXAN 900 MG + 0.9% SODIUM CHLORIDE 100ML
     Route: 041
     Dates: start: 20210619, end: 20210619

REACTIONS (1)
  - Myelosuppression [Recovering/Resolving]

NARRATIVE: CASE EVENT DATE: 20210625
